FAERS Safety Report 18604493 (Version 1)
Quarter: 2020Q4

REPORT INFORMATION
  Report Type: Spontaneous
  Country: CN (occurrence: CN)
  Receive Date: 20201211
  Receipt Date: 20201211
  Transmission Date: 20210114
  Serious: Yes (Other)
  Sender: FDA-Public Use
  Company Number: CN-TOPROL-202000109

PATIENT
  Age: 58 Year
  Sex: Female
  Weight: 56 kg

DRUGS (3)
  1. LEVAMLODIPINE BESYLATE [Suspect]
     Active Substance: LEVAMLODIPINE BESYLATE
     Indication: IDIOPATHIC INTRACRANIAL HYPERTENSION
     Route: 048
     Dates: start: 20201126, end: 20201126
  2. JIJIA [Suspect]
     Active Substance: IRBESARTAN
     Indication: IDIOPATHIC INTRACRANIAL HYPERTENSION
     Route: 048
     Dates: start: 20201126, end: 20201126
  3. BETALOC ZOK [Suspect]
     Active Substance: METOPROLOL SUCCINATE
     Indication: IDIOPATHIC INTRACRANIAL HYPERTENSION
     Route: 048
     Dates: start: 20201126, end: 20201126

REACTIONS (4)
  - Pyrexia [Recovered/Resolved]
  - Dizziness [Recovered/Resolved]
  - Chest discomfort [Recovering/Resolving]
  - Hot flush [Recovered/Resolved]

NARRATIVE: CASE EVENT DATE: 20201126
